FAERS Safety Report 17445463 (Version 1)
Quarter: 2020Q1

REPORT INFORMATION
  Report Type: Spontaneous
  Country: DZ (occurrence: DZ)
  Receive Date: 20200221
  Receipt Date: 20200221
  Transmission Date: 20200409
  Serious: Yes (Other)
  Sender: FDA-Public Use
  Company Number: DZ-PFIZER INC-2020075134

PATIENT
  Age: 37 Year
  Sex: Female

DRUGS (2)
  1. LYSANXIA [Concomitant]
     Active Substance: PRAZEPAM
     Dosage: 0.25 DF, 2X/DAY (1/4 TABLET, NOON AND AFTERNOON)
     Route: 048
  2. ZOLOFT [Suspect]
     Active Substance: SERTRALINE HYDROCHLORIDE
     Indication: OBSESSIVE-COMPULSIVE DISORDER
     Dosage: 50 MG, DAILY (ONE CAPSULE DAILY FOR 3 DAYS)

REACTIONS (2)
  - Abdominal pain upper [Unknown]
  - Gastritis [Unknown]
